FAERS Safety Report 8118063-9 (Version None)
Quarter: 2012Q1

REPORT INFORMATION
  Report Type: 
  Country: None (occurrence: None)
  Receive Date: 20120202
  Receipt Date: 20120125
  Transmission Date: 20120608
  Serious: Yes (Hospitalization, Congenital Anomaly)
  Sender: FDA-Public Use
  Company Number: GER/GER/12/0022807

PATIENT
  Sex: Male
  Weight: 3.96 kg

DRUGS (4)
  1. RAMIPRIL [Suspect]
     Indication: PRODUCT USED FOR UNKNOWN INDICATION
     Dosage: 2.5 MG, 1 IN 1 D, TRANSPLACENTAL
     Route: 064
     Dates: start: 20101228, end: 20110315
  2. XIPAMIDE (XIPAMIDE) [Suspect]
     Indication: PRODUCT USED FOR UNKNOWN INDICATION
     Dosage: 10 MG, 1 IN 1 D, TRANSPLACENTAL
     Route: 064
     Dates: start: 20110115, end: 20110415
  3. FOLIC ACID [Suspect]
     Indication: PRODUCT USED FOR UNKNOWN INDICATION
     Dosage: 0.4 MG, 1 IN 1 D, TRANSPLACENTAL
     Route: 064
     Dates: start: 20110505, end: 20110505
  4. AVELOX [Suspect]
     Indication: PRODUCT USED FOR UNKNOWN INDICATION
     Dosage: TRANSPLACENTAL
     Route: 064
     Dates: start: 20110201, end: 20110228

REACTIONS (3)
  - POSTMATURE BABY [None]
  - FALLOT'S PENTALOGY [None]
  - MATERNAL DRUGS AFFECTING FOETUS [None]
